FAERS Safety Report 15113423 (Version 1)
Quarter: 2018Q3

REPORT INFORMATION
  Report Type: Report from Study
  Country: IT (occurrence: IT)
  Receive Date: 20180706
  Receipt Date: 20180706
  Transmission Date: 20181010
  Serious: Yes (Other)
  Sender: FDA-Public Use
  Company Number: IT-TEVA-2018-IT-919726

PATIENT
  Age: 89 Year
  Sex: Female

DRUGS (11)
  1. PEPTAZOL 20 MG COMPRESSE GASTRORESISTENTI [Concomitant]
     Indication: DIVERTICULUM INTESTINAL
     Route: 048
  2. EUTIROX 125 MICROGRAMMI COMPRESSE [Concomitant]
     Indication: THYROID DISORDER
     Route: 048
  3. GLIBOMET 400 MG + 2,5 MG COMPRESSE RIVESTITE CON FILM [Concomitant]
     Indication: DIABETES MELLITUS
     Route: 065
  4. TOTALIP 40 MG COMPRESSE RIVESTITE CON FILM [Concomitant]
     Route: 065
  5. PLAUNAZIDE 20 MG/12,5 M COMPRESSE RIVESTITE CON FILM [Concomitant]
     Active Substance: HYDROCHLOROTHIAZIDE\OLMESARTAN MEDOXOMIL
     Indication: HYPERTENSION
     Route: 065
  6. NORMIX 200 MG COMPRESSE RIVESTITE CON FILM [Concomitant]
     Active Substance: RIFAXIMIN
     Indication: DIVERTICULUM INTESTINAL
     Route: 048
  7. BISOPROLOL HEMIFUMARATE [Concomitant]
     Active Substance: BISOPROLOL FUMARATE
     Route: 048
  8. LEVOFLOXACINA TEVA 500 MG COMPRESSE RIVESTITE CON FILM [Suspect]
     Active Substance: LEVOFLOXACIN
     Indication: OROPHARYNGEAL PAIN
     Dosage: 2 DOSAGE FORMS DAILY;
     Route: 048
     Dates: start: 20180428, end: 20180430
  9. SINGULAIR 4 MG COMPRESSE MASTICABILI [Concomitant]
     Indication: ASTHMA
     Route: 065
  10. PLAVIX [Concomitant]
     Active Substance: CLOPIDOGREL BISULFATE
     Indication: HYPERTENSION
     Route: 065
  11. EUTIROX 100 MICROGRAMMI COMPRESSE [Concomitant]
     Active Substance: LEVOTHYROXINE SODIUM
     Indication: THYROID PAIN
     Route: 048

REACTIONS (4)
  - Dyspnoea [Recovered/Resolved with Sequelae]
  - Nausea [Recovered/Resolved with Sequelae]
  - Abdominal pain upper [Recovered/Resolved with Sequelae]
  - Asthenia [Recovered/Resolved with Sequelae]

NARRATIVE: CASE EVENT DATE: 20180428
